FAERS Safety Report 4614147-8 (Version None)
Quarter: 2005Q1

REPORT INFORMATION
  Report Type: 
  Country: None (occurrence: None)
  Receive Date: 20050316
  Receipt Date: 20050225
  Transmission Date: 20050727
  Serious: Yes (Other)
  Sender: FDA-Public Use
  Company Number: GBS050216538

PATIENT
  Age: 63 Year
  Sex: Male

DRUGS (2)
  1. FORTEO [Suspect]
     Indication: OSTEOPOROSIS
     Dosage: 20 UG DAY
     Dates: start: 20050119
  2. PARACETAMOL [Concomitant]

REACTIONS (3)
  - HERPES SIMPLEX [None]
  - INFLUENZA LIKE ILLNESS [None]
  - THIRST [None]
